FAERS Safety Report 18301058 (Version 1)
Quarter: 2020Q3

REPORT INFORMATION
  Report Type: Spontaneous
  Country: FR (occurrence: FR)
  Receive Date: 20200923
  Receipt Date: 20200923
  Transmission Date: 20201103
  Serious: Yes (Life-Threatening, Hospitalization)
  Sender: FDA-Public Use
  Company Number: GXKR2007FR01368

PATIENT
  Age: 33 Year
  Sex: Male

DRUGS (7)
  1. INFLIXIMAB [Suspect]
     Active Substance: INFLIXIMAB
     Indication: FISTULA
     Dosage: 5 MG/KG, EVERY 6 WEEKS (A TOTAL OF 7 COURSES)
     Route: 065
     Dates: start: 200301
  2. PREDNISONE. [Suspect]
     Active Substance: PREDNISONE
     Indication: CROHN^S DISEASE
     Dosage: 10 MG, QD(FOR SEVERAL MONTHS)
     Route: 065
  3. AZATHIOPRINE. [Suspect]
     Active Substance: AZATHIOPRINE
     Dosage: 100 MG (2 MG/KG/DAY)
     Route: 065
  4. INFLIXIMAB [Suspect]
     Active Substance: INFLIXIMAB
     Dosage: THREE COURSES
     Route: 065
     Dates: start: 200006
  5. INFLIXIMAB [Suspect]
     Active Substance: INFLIXIMAB
     Indication: CROHN^S DISEASE
     Dosage: 5 MG/KG, EVERY 6 WEEKS (A TOTAL OF 7 COURSES)THREE COURSES5 MG/KG, EVERY 6 WEEKS (A TOTAL OF 7 COURS
     Route: 065
     Dates: start: 2000
  6. AZATHIOPRINE. [Suspect]
     Active Substance: AZATHIOPRINE
     Indication: PRODUCT USED FOR UNKNOWN INDICATION
     Dosage: 100 MG, DAILY
     Route: 065
     Dates: start: 1993
  7. AZATHIOPRINE. [Suspect]
     Active Substance: AZATHIOPRINE
     Dosage: 5 MG/KG
     Route: 065
     Dates: start: 200301

REACTIONS (14)
  - Varicella [Recovered/Resolved]
  - Keratitis [Recovered/Resolved]
  - Pain [Recovered/Resolved]
  - Lymphopenia [Recovered/Resolved]
  - Varicella zoster pneumonia [Recovering/Resolving]
  - Rash vesicular [Recovering/Resolving]
  - Off label use [Unknown]
  - Pneumonia herpes viral [Recovered/Resolved]
  - Thrombocytopenia [Recovering/Resolving]
  - Subileus [Recovered/Resolved]
  - Abdominal distension [Recovered/Resolved]
  - Vomiting [Recovered/Resolved]
  - Hepatitis [Recovered/Resolved]
  - Nausea [Recovered/Resolved]

NARRATIVE: CASE EVENT DATE: 200301
